FAERS Safety Report 5928035-8 (Version None)
Quarter: 2008Q4

REPORT INFORMATION
  Report Type: 
  Country: None (occurrence: None)
  Receive Date: 20081023
  Receipt Date: 20081017
  Transmission Date: 20090506
  Serious: Yes (Hospitalization)
  Sender: FDA-Public Use
  Company Number: A0737504A

PATIENT
  Age: 85 Year
  Sex: Male

DRUGS (13)
  1. ADVAIR DISKUS 100/50 [Suspect]
     Indication: DYSPNOEA
     Route: 055
     Dates: start: 20030101, end: 20080509
  2. SEREVENT [Suspect]
     Indication: DYSPNOEA
     Route: 055
     Dates: start: 20080509
  3. OXYGEN [Concomitant]
     Route: 065
  4. NEBULIZER [Concomitant]
  5. JANUVIA [Concomitant]
  6. OMEPRAZOLE [Concomitant]
  7. CARTIA XT [Concomitant]
  8. FUROSEMIDE [Concomitant]
  9. FOSINOPRIL SODIUM [Concomitant]
  10. ASPIRIN [Concomitant]
  11. POTASSIUM IODIDE [Concomitant]
  12. LAXATIVE [Concomitant]
  13. UNKNOWN EYE MEDICATION [Concomitant]
     Route: 065

REACTIONS (6)
  - ABDOMINAL DISCOMFORT [None]
  - LUNG INFECTION [None]
  - OEDEMA PERIPHERAL [None]
  - OROPHARYNGEAL PAIN [None]
  - PNEUMONIA [None]
  - STAPHYLOCOCCAL INFECTION [None]
